FAERS Safety Report 24595536 (Version 1)
Quarter: 2024Q4

REPORT INFORMATION
  Report Type: Report from Study
  Country: CA (occurrence: CA)
  Receive Date: 20241109
  Receipt Date: 20241109
  Transmission Date: 20250115
  Serious: Yes (Other)
  Sender: JOHNSON AND JOHNSON
  Company Number: CA-JNJFOC-20240648987

PATIENT
  Age: 44 Year
  Sex: Female

DRUGS (3)
  1. SIMPONI [Suspect]
     Active Substance: GOLIMUMAB
     Indication: Colitis ulcerative
     Route: 058
     Dates: start: 20190920
  2. SIMPONI [Suspect]
     Active Substance: GOLIMUMAB
     Route: 058
  3. TYLENOL [Concomitant]
     Active Substance: ACETAMINOPHEN

REACTIONS (9)
  - Colitis ulcerative [Unknown]
  - Lower limb fracture [Recovering/Resolving]
  - Femur fracture [Recovering/Resolving]
  - Meniscus injury [Recovering/Resolving]
  - Osteonecrosis [Recovering/Resolving]
  - Osteoporosis [Recovering/Resolving]
  - Adverse event [Not Recovered/Not Resolved]
  - Knee operation [Recovered/Resolved]
  - Viral upper respiratory tract infection [Recovering/Resolving]
